FAERS Safety Report 21689192 (Version 1)
Quarter: 2022Q4

REPORT INFORMATION
  Report Type: Report from Study
  Country: RO (occurrence: RO)
  Receive Date: 20221206
  Receipt Date: 20221206
  Transmission Date: 20230113
  Serious: Yes (Hospitalization)
  Sender: FDA-Public Use
  Company Number: RO-ABBVIE-4224792

PATIENT
  Age: 66 Year
  Sex: Female

DRUGS (2)
  1. CARBIDOPA\LEVODOPA [Suspect]
     Active Substance: CARBIDOPA\LEVODOPA
     Indication: Parkinson^s disease
     Dosage: DM=6.00 DC=3.30 ED=1.00 NRED=2; DMN=0.00 DCN=0.00 EDN=0.00 NREDN=0
     Route: 050
     Dates: start: 20180921, end: 20221202
  2. CARBIDOPA\LEVODOPA [Suspect]
     Active Substance: CARBIDOPA\LEVODOPA

REACTIONS (1)
  - Psychotic disorder [Recovering/Resolving]

NARRATIVE: CASE EVENT DATE: 20221128
